FAERS Safety Report 4868396-4 (Version None)
Quarter: 2005Q4

REPORT INFORMATION
  Report Type: 
  Country: None (occurrence: None)
  Receive Date: 20051223
  Receipt Date: 20051207
  Transmission Date: 20060501
  Serious: Yes (Death)
  Sender: FDA-Public Use
  Company Number: 0205059

PATIENT
  Sex: 0

DRUGS (1)
  1. DEPODUR            (MORPHINE SULFATE) [Suspect]
     Indication: POSTOPERATIVE ANALGESIA

REACTIONS (1)
  - ADVERSE EVENT [None]
